FAERS Safety Report 8991852 (Version 1)
Quarter: 2012Q4

REPORT INFORMATION
  Report Type: 
  Country: DE (occurrence: JP)
  Receive Date: 20121231
  Receipt Date: 20121231
  Transmission Date: 20130627
  Serious: Yes (Death, Hospitalization)
  Sender: FDA-Public Use
  Company Number: JP-BRISTOL-MYERS SQUIBB COMPANY-16881575

PATIENT
  Age: 73 Year
  Sex: Male
  Weight: 60 kg

DRUGS (4)
  1. ERBITUX SOLN FOR INF 5MG/ML [Suspect]
     Indication: COLORECTAL CANCER RECURRENT
     Dosage: 11jul12-unk
02Aug12-09aug12:415mg(II cycle),
     Route: 041
     Dates: start: 20120711, end: 20120809
  2. OXALIPLATIN [Suspect]
     Indication: COLORECTAL CANCER RECURRENT
     Dosage: 2nd course:215mg:02Aug12
11jul12-unk
2aug12-
     Route: 041
     Dates: start: 20120711
  3. TS-1 [Suspect]
     Indication: COLORECTAL CANCER RECURRENT
     Dosage: 02Aug12:120 mg (2nd course)
11jul12-unk
2aug12-
     Route: 065
     Dates: start: 20120711
  4. FENTANYL CITRATE [Concomitant]
     Indication: PAIN
     Route: 058
     Dates: start: 20120719

REACTIONS (3)
  - Intestinal obstruction [Fatal]
  - Intestinal perforation [Fatal]
  - Infection [Unknown]
